FAERS Safety Report 7380498-X (Version None)
Quarter: 2011Q1

REPORT INFORMATION
  Report Type: 
  Country: None (occurrence: None)
  Receive Date: 20110329
  Receipt Date: 20110323
  Transmission Date: 20110831
  Serious: Yes (Hospitalization)
  Sender: FDA-Public Use
  Company Number: US-SANOFI-AVENTIS-2010SA045176

PATIENT
  Age: 72 Year
  Sex: Male
  Weight: 86.5 kg

DRUGS (14)
  1. MULTIVITAMIN [Concomitant]
  2. ANTIHYPERTENSIVES [Concomitant]
  3. MULTI-VITAMINS [Concomitant]
  4. ELIGARD [Suspect]
     Dosage: EVERY 3 MONTH
     Route: 058
     Dates: start: 20100312, end: 20100312
  5. TAXOTERE [Suspect]
     Route: 041
     Dates: start: 20100716, end: 20100716
  6. ASPIRIN [Concomitant]
  7. TAXOTERE [Suspect]
     Indication: PROSTATE CANCER
     Route: 041
     Dates: start: 20100312, end: 20100312
  8. CASODEX [Suspect]
     Indication: PROSTATE CANCER
     Route: 048
     Dates: start: 20100312, end: 20100410
  9. TAXOTERE [Suspect]
     Dosage: WEEK 22
     Route: 041
     Dates: start: 20100806, end: 20100806
  10. ELIGARD [Suspect]
     Indication: PROSTATE CANCER
     Route: 058
     Dates: start: 20100604, end: 20100604
  11. CHOLESTEROL- AND TRIGLYCERIDE REDUCERS [Concomitant]
  12. PRAVASTATIN [Concomitant]
  13. CARDIAC THERAPY [Concomitant]
  14. METOPROLOL TARTRATE [Concomitant]

REACTIONS (1)
  - FEBRILE NEUTROPENIA [None]
